FAERS Safety Report 5140208-3 (Version None)
Quarter: 2006Q4

REPORT INFORMATION
  Report Type: 
  Country: None (occurrence: None)
  Receive Date: 20061031
  Receipt Date: 20061020
  Transmission Date: 20070319
  Serious: Yes (Hospitalization, Other)
  Sender: FDA-Public Use
  Company Number: IE-PURDUE-USA_2006_0025477

PATIENT
  Age: 39 Year
  Sex: Male

DRUGS (2)
  1. OXYCONTIN [Suspect]
     Indication: PAIN
     Dosage: 60 UNK, SEE TEXT
     Route: 045
     Dates: start: 20020201
  2. OXYNORM CAPSULES [Suspect]
     Indication: PAIN
     Dosage: 10 MG, BID
     Dates: start: 20020201

REACTIONS (9)
  - DEPRESSION [None]
  - DRUG ABUSER [None]
  - DRUG DEPENDENCE [None]
  - DRUG TOLERANCE [None]
  - DRUG WITHDRAWAL SYNDROME [None]
  - INCORRECT ROUTE OF DRUG ADMINISTRATION [None]
  - INTENTIONAL DRUG MISUSE [None]
  - INTENTIONAL OVERDOSE [None]
  - SUICIDAL IDEATION [None]
